FAERS Safety Report 5895360-9 (Version None)
Quarter: 2008Q3

REPORT INFORMATION
  Report Type: 
  Country: None (occurrence: None)
  Receive Date: 20080923
  Receipt Date: 20080923
  Transmission Date: 20090109
  Serious: No
  Sender: FDA-Public Use
  Company Number: None

PATIENT
  Age: 66 Year
  Sex: Female
  Weight: 99.7913 kg

DRUGS (1)
  1. NORVASC [Suspect]

REACTIONS (2)
  - ARTHRALGIA [None]
  - MYALGIA [None]
